FAERS Safety Report 21265079 (Version 1)
Quarter: 2022Q3

REPORT INFORMATION
  Report Type: Spontaneous
  Country: CA (occurrence: CA)
  Receive Date: 20220829
  Receipt Date: 20220829
  Transmission Date: 20221027
  Serious: Yes (Other)
  Sender: FDA-Public Use
  Company Number: CA-SAMSUNG BIOEPIS-SB-2022-21012

PATIENT
  Age: 69 Year
  Sex: Female
  Weight: 77 kg

DRUGS (2)
  1. INFLIXIMAB [Suspect]
     Active Substance: INFLIXIMAB
     Indication: Rheumatoid arthritis
     Route: 042
  2. PREDNISONE [Concomitant]
     Active Substance: PREDNISONE
     Indication: Product used for unknown indication
     Route: 065

REACTIONS (9)
  - Arthralgia [Unknown]
  - Gait disturbance [Unknown]
  - Joint swelling [Unknown]
  - Limb discomfort [Unknown]
  - Mobility decreased [Unknown]
  - Pain in extremity [Unknown]
  - Peripheral swelling [Unknown]
  - Rheumatoid arthritis [Unknown]
  - Drug ineffective [Unknown]
